FAERS Safety Report 11157416 (Version 1)
Quarter: 2015Q2

REPORT INFORMATION
  Report Type: Spontaneous
  Country: US (occurrence: US)
  Receive Date: 20150603
  Receipt Date: 20150603
  Transmission Date: 20150821
  Serious: No
  Sender: FDA-Public Use
  Company Number: US-009507513-1505USA004128

PATIENT
  Age: 28 Year
  Sex: Female
  Weight: 147.85 kg

DRUGS (3)
  1. IMPLANON [Suspect]
     Active Substance: ETONOGESTREL
     Indication: CONTRACEPTION
     Dosage: INSERTION IN THE LEFT ARM
     Route: 059
     Dates: start: 20081029, end: 20090701
  2. QUAZEPAM. [Concomitant]
     Active Substance: QUAZEPAM
  3. TOPAMAX [Concomitant]
     Active Substance: TOPIRAMATE

REACTIONS (3)
  - Implant site pain [Not Recovered/Not Resolved]
  - Device breakage [Not Recovered/Not Resolved]
  - Product quality issue [Unknown]

NARRATIVE: CASE EVENT DATE: 200906
